FAERS Safety Report 21206846 (Version 2)
Quarter: 2022Q3

REPORT INFORMATION
  Report Type: Spontaneous
  Country: JP (occurrence: JP)
  Receive Date: 20220812
  Receipt Date: 20220819
  Transmission Date: 20221026
  Serious: Yes (Hospitalization, Other)
  Sender: FDA-Public Use
  Company Number: JP-KYOWAKIRIN-2022BKK012690

PATIENT

DRUGS (2)
  1. ISTRADEFYLLINE [Suspect]
     Active Substance: ISTRADEFYLLINE
     Indication: Parkinson^s disease
     Dosage: 20 MG (TWO TO THREE TIMES)
     Route: 065
  2. ISTRADEFYLLINE [Suspect]
     Active Substance: ISTRADEFYLLINE
     Dosage: 20 MG
     Route: 065

REACTIONS (2)
  - Parkinsonism hyperpyrexia syndrome [Recovering/Resolving]
  - Overdose [Unknown]
